FAERS Safety Report 22842068 (Version 2)
Quarter: 2023Q4

REPORT INFORMATION
  Report Type: Spontaneous
  Country: US (occurrence: None)
  Receive Date: 20230821
  Receipt Date: 20231019
  Transmission Date: 20240110
  Serious: No
  Sender: FDA-Public Use
  Company Number: 2023A184055

PATIENT

DRUGS (1)
  1. SYMBICORT [Suspect]
     Active Substance: BUDESONIDE\FORMOTEROL FUMARATE DIHYDRATE
     Dosage: 160UG; 120 INHALATIONS UNKNOWN
     Route: 055

REACTIONS (5)
  - Pain [Unknown]
  - Dyspnoea [Unknown]
  - Oropharyngeal discomfort [Unknown]
  - Product dose omission issue [Unknown]
  - Device difficult to use [Unknown]
